FAERS Safety Report 4327501-9 (Version None)
Quarter: 2004Q1

REPORT INFORMATION
  Report Type: 
  Country: None (occurrence: None)
  Receive Date: 20040325
  Receipt Date: 20040311
  Transmission Date: 20041129
  Serious: No
  Sender: FDA-Public Use
  Company Number: 02100-JPN-04-0050

PATIENT
  Age: 83 Year
  Sex: Female

DRUGS (2)
  1. CILOSTAZOL [Suspect]
     Indication: ANTIPLATELET THERAPY
     Dosage: ORAL
     Route: 048
  2. ASPIRIN [Concomitant]

REACTIONS (5)
  - ASTHENIA [None]
  - BACK PAIN [None]
  - DIFFICULTY IN WALKING [None]
  - EXTRADURAL HAEMATOMA [None]
  - PARALYSIS FLACCID [None]
